FAERS Safety Report 14081990 (Version 1)
Quarter: 2017Q4

REPORT INFORMATION
  Report Type: Spontaneous
  Country: US (occurrence: US)
  Receive Date: 20171012
  Receipt Date: 20171012
  Transmission Date: 20180321
  Serious: No
  Sender: FDA-Public Use
  Company Number: US-MYLANLABS-2017M1048341

PATIENT
  Sex: Male

DRUGS (1)
  1. OMEPRAZOLE. [Suspect]
     Active Substance: OMEPRAZOLE
     Indication: GASTROOESOPHAGEAL REFLUX DISEASE

REACTIONS (6)
  - Neuropathy peripheral [Unknown]
  - Pain [Unknown]
  - Drug ineffective [Unknown]
  - Gait disturbance [Unknown]
  - Hypovitaminosis [Unknown]
  - Unevaluable event [Unknown]
